FAERS Safety Report 24298482 (Version 2)
Quarter: 2024Q4

REPORT INFORMATION
  Report Type: Report from Study
  Country: ES (occurrence: ES)
  Receive Date: 20240909
  Receipt Date: 20241008
  Transmission Date: 20250115
  Serious: Yes (Hospitalization)
  Sender: BAUSCH AND LOMB
  Company Number: ES-SA-SAC20240408001025

PATIENT
  Age: 67 Year
  Sex: Female

DRUGS (52)
  1. DEXAMETHASONE [Suspect]
     Active Substance: DEXAMETHASONE
     Indication: Plasma cell myeloma refractory
     Dosage: 40 MG, QW
     Route: 065
     Dates: start: 20240305, end: 20240320
  2. DEXAMETHASONE [Suspect]
     Active Substance: DEXAMETHASONE
     Dosage: 40 MG, QW
     Route: 065
     Dates: start: 20230913, end: 20230928
  3. DEXAMETHASONE [Suspect]
     Active Substance: DEXAMETHASONE
     Dosage: 40 MG, QD
     Route: 065
     Dates: start: 20240206, end: 20240221
  4. DEXAMETHASONE [Suspect]
     Active Substance: DEXAMETHASONE
     Dosage: 40 MG, QW
     Route: 065
     Dates: start: 20231113, end: 20231128
  5. DEXAMETHASONE [Suspect]
     Active Substance: DEXAMETHASONE
     Dosage: 40 MG, QW
     Route: 065
     Dates: start: 20230802, end: 20230802
  6. DEXAMETHASONE [Suspect]
     Active Substance: DEXAMETHASONE
     Dosage: 40 MG, QW
     Route: 065
     Dates: start: 20230816, end: 20230906
  7. DEXAMETHASONE [Suspect]
     Active Substance: DEXAMETHASONE
     Dosage: 40 MG, QW
     Route: 065
     Dates: start: 20240109, end: 20240124
  8. DEXAMETHASONE [Suspect]
     Active Substance: DEXAMETHASONE
     Dosage: 20 MG, QD
     Route: 065
     Dates: start: 20240102, end: 20240103
  9. DEXAMETHASONE [Suspect]
     Active Substance: DEXAMETHASONE
     Dosage: 20 MG, QD
     Route: 065
     Dates: start: 20240227, end: 20240228
  10. DEXAMETHASONE [Suspect]
     Active Substance: DEXAMETHASONE
     Dosage: 20 MG, QW
     Route: 065
     Dates: start: 20240409, end: 20240430
  11. DEXAMETHASONE [Suspect]
     Active Substance: DEXAMETHASONE
     Dosage: 20 MG, QD
     Route: 065
     Dates: start: 20231204, end: 20231205
  12. DEXAMETHASONE [Suspect]
     Active Substance: DEXAMETHASONE
     Dosage: 40 MG
     Route: 065
     Dates: start: 20231016, end: 20231031
  13. DEXAMETHASONE [Suspect]
     Active Substance: DEXAMETHASONE
     Dosage: 20 MG, QD
     Route: 065
     Dates: start: 20240130, end: 20240131
  14. DEXAMETHASONE [Suspect]
     Active Substance: DEXAMETHASONE
     Dosage: 20 MG, QW
     Route: 065
     Dates: start: 20240507
  15. DEXAMETHASONE [Suspect]
     Active Substance: DEXAMETHASONE
     Dosage: 40 MG, QW
     Route: 065
     Dates: start: 20231212, end: 20231227
  16. CARFILZOMIB [Suspect]
     Active Substance: CARFILZOMIB
     Indication: Plasma cell myeloma refractory
     Dosage: 29 MG, BIW
     Route: 065
     Dates: start: 20230913, end: 20230928
  17. CARFILZOMIB [Suspect]
     Active Substance: CARFILZOMIB
     Dosage: 56 MG/M2, BIW
     Route: 065
     Dates: start: 20240109, end: 20240124
  18. CARFILZOMIB [Suspect]
     Active Substance: CARFILZOMIB
     Dosage: 56 MG/M2, BIW
     Route: 065
     Dates: start: 20240305, end: 20240313
  19. CARFILZOMIB [Suspect]
     Active Substance: CARFILZOMIB
     Dosage: 29 MG, BIW
     Route: 065
     Dates: start: 20230823, end: 20230831
  20. CARFILZOMIB [Suspect]
     Active Substance: CARFILZOMIB
     Dosage: 29 MG, QD
     Route: 065
     Dates: start: 20230802, end: 20230802
  21. CARFILZOMIB [Suspect]
     Active Substance: CARFILZOMIB
     Dosage: 56 MG/M2, BIW
     Route: 065
     Dates: start: 20231113, end: 20231128
  22. CARFILZOMIB [Suspect]
     Active Substance: CARFILZOMIB
     Dosage: 56 MG/M2, BIW
     Route: 065
     Dates: start: 20240507
  23. CARFILZOMIB [Suspect]
     Active Substance: CARFILZOMIB
     Dosage: 56 MG/M2, BIW
     Route: 065
     Dates: start: 20240206, end: 20240221
  24. CARFILZOMIB [Suspect]
     Active Substance: CARFILZOMIB
     Dosage: 29 MG, BIW
     Route: 065
     Dates: start: 20230816, end: 20230831
  25. CARFILZOMIB [Suspect]
     Active Substance: CARFILZOMIB
     Dosage: 56 MG, QW
     Route: 065
     Dates: start: 20240409
  26. CARFILZOMIB [Suspect]
     Active Substance: CARFILZOMIB
     Dosage: 56 MG/M2
     Route: 065
     Dates: start: 20231016, end: 20231031
  27. CARFILZOMIB [Suspect]
     Active Substance: CARFILZOMIB
     Dosage: 56 MG/M2, BIW
     Route: 065
     Dates: start: 20231212, end: 20231227
  28. ISATUXIMAB [Suspect]
     Active Substance: ISATUXIMAB
     Indication: Plasma cell myeloma refractory
     Dosage: 526 MG, BIW
     Route: 065
     Dates: start: 20240507
  29. ISATUXIMAB [Suspect]
     Active Substance: ISATUXIMAB
     Dosage: 526 MG, QW
     Route: 065
     Dates: start: 20230802, end: 20230802
  30. ISATUXIMAB [Suspect]
     Active Substance: ISATUXIMAB
     Dosage: 526 MG, BIW
     Route: 065
     Dates: start: 20240206, end: 20240220
  31. ISATUXIMAB [Suspect]
     Active Substance: ISATUXIMAB
     Dosage: 526 MG, BIW
     Route: 065
     Dates: start: 20240305, end: 20240319
  32. ISATUXIMAB [Suspect]
     Active Substance: ISATUXIMAB
     Dosage: 526 MG, BIW
     Route: 065
     Dates: start: 20240109, end: 20240123
  33. ISATUXIMAB [Suspect]
     Active Substance: ISATUXIMAB
     Dosage: 526 MG
     Route: 065
     Dates: start: 20230802, end: 20230802
  34. ISATUXIMAB [Suspect]
     Active Substance: ISATUXIMAB
     Dosage: 526 MG, BIW
     Route: 065
     Dates: start: 20231212, end: 20231226
  35. ISATUXIMAB [Suspect]
     Active Substance: ISATUXIMAB
     Dosage: 526 MG, BIW
     Route: 065
     Dates: start: 20231016, end: 20231030
  36. ISATUXIMAB [Suspect]
     Active Substance: ISATUXIMAB
     Dosage: 526 MG, BIW
     Route: 065
     Dates: start: 20240409, end: 20240423
  37. ISATUXIMAB [Suspect]
     Active Substance: ISATUXIMAB
     Dosage: 526 MG, BIW
     Route: 065
     Dates: start: 20231113, end: 20231127
  38. ISATUXIMAB [Suspect]
     Active Substance: ISATUXIMAB
     Dosage: 526 MG, QW
     Route: 065
     Dates: start: 20230816, end: 20230906
  39. ISATUXIMAB [Suspect]
     Active Substance: ISATUXIMAB
     Dosage: 526 MG, BIW
     Route: 065
     Dates: start: 20230913, end: 20230927
  40. DEXCHLORPHENIRAMINE [Concomitant]
     Active Substance: DEXCHLORPHENIRAMINE
     Indication: Product used for unknown indication
     Dosage: UNK
     Dates: start: 20230802, end: 20230802
  41. LEVOTHYROXINE [Concomitant]
     Active Substance: LEVOTHYROXINE
     Indication: Product used for unknown indication
     Dosage: UNK
     Dates: start: 20210614
  42. LOSARTAN [Concomitant]
     Active Substance: LOSARTAN
     Indication: Product used for unknown indication
     Dosage: UNK
     Dates: start: 20220405
  43. ALBUTEROL [Concomitant]
     Active Substance: ALBUTEROL
     Indication: Product used for unknown indication
     Dosage: UNK
     Dates: start: 20230802, end: 20230802
  44. AMLODIPINE [Concomitant]
     Active Substance: AMLODIPINE BESYLATE
     Indication: Product used for unknown indication
     Dosage: UNK
     Dates: start: 20240401
  45. HYDROCORTISONE [Concomitant]
     Active Substance: HYDROCORTISONE
     Indication: Product used for unknown indication
     Dosage: UNK
     Dates: start: 20230802, end: 20230802
  46. UNSPECIFIED INGREDIENT [Concomitant]
     Active Substance: UNSPECIFIED INGREDIENT
     Indication: Product used for unknown indication
     Dosage: UNK
     Dates: start: 20220621, end: 20230123
  47. OMEPRAZOLE [Concomitant]
     Active Substance: OMEPRAZOLE
     Indication: Product used for unknown indication
     Dosage: UNK
     Dates: start: 20220621
  48. ACYCLOVIR [Concomitant]
     Active Substance: ACYCLOVIR
     Indication: Product used for unknown indication
     Dosage: UNK
     Dates: start: 20220621
  49. ACETAMINOPHEN [Concomitant]
     Active Substance: ACETAMINOPHEN
     Indication: Premedication
     Dosage: UNK
     Dates: start: 20230802, end: 20230802
  50. ERYTHROPOIETIN [Concomitant]
     Active Substance: ERYTHROPOIETIN
     Indication: Product used for unknown indication
     Dosage: UNK
     Dates: start: 2023
  51. DEXAMETHASONE [Concomitant]
     Active Substance: DEXAMETHASONE
     Indication: Premedication
     Dates: start: 20230802, end: 20230802
  52. DEXAMETHASONE [Concomitant]
     Active Substance: DEXAMETHASONE
     Dates: start: 20230816

REACTIONS (3)
  - Acute kidney injury [Recovered/Resolved]
  - Diarrhoea [Recovered/Resolved with Sequelae]
  - Diarrhoea [Recovered/Resolved]

NARRATIVE: CASE EVENT DATE: 20240305
